FAERS Safety Report 23542335 (Version 12)
Quarter: 2024Q4

REPORT INFORMATION
  Report Type: Spontaneous
  Country: US (occurrence: US)
  Receive Date: 20240220
  Receipt Date: 20241023
  Transmission Date: 20250115
  Serious: Yes (Hospitalization, Other)
  Sender: SANOFI AVENTIS
  Company Number: US-SA-SAC20240214000732

PATIENT
  Age: 3 Year
  Sex: Male
  Weight: 35 kg

DRUGS (16)
  1. ALPROLIX [Suspect]
     Active Substance: EFTRENONACOG ALFA
     Indication: Factor IX deficiency
     Dosage: 1650 UNITS (1463-1787) SLOW IV EVERY 7 DAYS
     Route: 042
     Dates: start: 202102
  2. ALPROLIX [Suspect]
     Active Substance: EFTRENONACOG ALFA
     Indication: Factor IX deficiency
     Dosage: 1650 UNITS (1463-1787) SLOW IV EVERY 7 DAYS
     Route: 042
     Dates: start: 202102
  3. ALPROLIX [Suspect]
     Active Substance: EFTRENONACOG ALFA
     Dosage: 2500 U
     Route: 042
     Dates: start: 202102
  4. ALPROLIX [Suspect]
     Active Substance: EFTRENONACOG ALFA
     Dosage: 2500 U
     Route: 042
     Dates: start: 202102
  5. ALPROLIX [Suspect]
     Active Substance: EFTRENONACOG ALFA
     Dosage: 1000 U
     Route: 042
     Dates: start: 202102
  6. ALPROLIX [Suspect]
     Active Substance: EFTRENONACOG ALFA
     Dosage: 1000 U
     Route: 042
     Dates: start: 202102
  7. ALPROLIX [Suspect]
     Active Substance: EFTRENONACOG ALFA
     Dosage: 650 U, QW
     Route: 042
     Dates: start: 202102
  8. ALPROLIX [Suspect]
     Active Substance: EFTRENONACOG ALFA
     Dosage: 650 U, QW
     Route: 042
     Dates: start: 202102
  9. ALPROLIX [Suspect]
     Active Substance: EFTRENONACOG ALFA
     Dosage: 2500 UNITS (2250-2750) AT HOURS 12, 30, 60, 84, AND DAYS 5, 7, AND 9
     Route: 042
     Dates: start: 20240327, end: 2024
  10. ALPROLIX [Suspect]
     Active Substance: EFTRENONACOG ALFA
     Dosage: 2500 UNITS (2250-2750) AT HOURS 12, 30, 60, 84, AND DAYS 5, 7, AND 9
     Route: 042
     Dates: start: 20240327, end: 2024
  11. ALPROLIX [Suspect]
     Active Substance: EFTRENONACOG ALFA
     Dosage: 500 U, QW
     Route: 042
     Dates: start: 2024
  12. ALPROLIX [Suspect]
     Active Substance: EFTRENONACOG ALFA
     Dosage: 500 U, QW
     Route: 042
     Dates: start: 2024
  13. ALPROLIX [Suspect]
     Active Substance: EFTRENONACOG ALFA
     Dosage: 1000 U, QW
     Route: 042
     Dates: start: 2024
  14. ALPROLIX [Suspect]
     Active Substance: EFTRENONACOG ALFA
     Dosage: 1000 U, QW
     Route: 042
     Dates: start: 2024
  15. ALPROLIX [Suspect]
     Active Substance: EFTRENONACOG ALFA
     Dosage: 200 U, QW
     Route: 042
     Dates: start: 2024
  16. ALPROLIX [Suspect]
     Active Substance: EFTRENONACOG ALFA
     Dosage: 200 U, QW
     Route: 042
     Dates: start: 2024

REACTIONS (16)
  - Device related bacteraemia [Unknown]
  - Pyrexia [Unknown]
  - Cough [Unknown]
  - Vomiting [Unknown]
  - Weight increased [Not Recovered/Not Resolved]
  - Traumatic haemorrhage [Unknown]
  - Contusion [Unknown]
  - Joint swelling [Unknown]
  - Limb discomfort [Unknown]
  - Traumatic haemorrhage [Unknown]
  - Haematoma [Unknown]
  - Asthma [Unknown]
  - Pyrexia [Unknown]
  - Rash [Unknown]
  - Vomiting [Unknown]
  - Vomiting [Unknown]

NARRATIVE: CASE EVENT DATE: 20240221
